FAERS Safety Report 8572033-5 (Version None)
Quarter: 2012Q3

REPORT INFORMATION
  Report Type: 
  Country: None (occurrence: None)
  Receive Date: 20120806
  Receipt Date: 20120727
  Transmission Date: 20120928
  Serious: Yes (Hospitalization)
  Sender: FDA-Public Use
  Company Number: JP-BRISTOL-MYERS SQUIBB COMPANY-16789034

PATIENT
  Age: 61 Year
  Sex: Male

DRUGS (2)
  1. IRINOTECAN HCL [Suspect]
     Indication: LARGE INTESTINE CARCINOMA
     Dosage: NO OF INF:2 LAST DOSE ON 28JUN2012
     Route: 042
     Dates: start: 20120622
  2. ERBITUX [Suspect]
     Indication: LARGE INTESTINE CARCINOMA
     Dosage: NO OF INF:2 LAST DOSE ON 28JUN2012
     Route: 042
     Dates: start: 20120622

REACTIONS (1)
  - EROSIVE DUODENITIS [None]
